FAERS Safety Report 7561096-1 (Version None)
Quarter: 2011Q2

REPORT INFORMATION
  Report Type: 
  Country: None (occurrence: None)
  Receive Date: 20110621
  Receipt Date: 20110616
  Transmission Date: 20111010
  Serious: Yes (Other)
  Sender: FDA-Public Use
  Company Number: US-PFIZER INC-2011064324

PATIENT
  Sex: Male

DRUGS (6)
  1. FOLIC ACID [Concomitant]
     Indication: FOLATE DEFICIENCY
     Dosage: UNK
     Dates: start: 20060101
  2. ALBUTEROL SULFATE AUTOHALER [Concomitant]
     Indication: DYSPNOEA
     Dosage: UNK
     Dates: start: 20030101
  3. CHANTIX [Suspect]
     Indication: SMOKING CESSATION THERAPY
     Dosage: STARTER PACK AND 1MG
     Dates: start: 20080201, end: 20080601
  4. DILANTIN [Concomitant]
     Indication: GRAND MAL CONVULSION
     Dosage: UNK
     Dates: start: 20030101
  5. DILANTIN [Concomitant]
     Indication: COMPLEX PARTIAL SEIZURES
  6. OMEPRAZOLE [Concomitant]
     Indication: GASTROOESOPHAGEAL REFLUX DISEASE
     Dosage: UNK
     Dates: start: 20070101, end: 20090101

REACTIONS (2)
  - DEPRESSION [None]
  - CONVULSION [None]
